FAERS Safety Report 14688673 (Version 2)
Quarter: 2018Q2

REPORT INFORMATION
  Report Type: Spontaneous
  Country: GB (occurrence: GB)
  Receive Date: 20180328
  Receipt Date: 20180409
  Transmission Date: 20180711
  Serious: Yes (Hospitalization, Other)
  Sender: FDA-Public Use
  Company Number: GB-PFIZER INC-2018123572

PATIENT
  Age: 35 Year
  Sex: Female

DRUGS (22)
  1. AMPHOTERICIN [Concomitant]
     Active Substance: AMPHOTERICIN B
     Indication: PARACENTESIS EYE
     Dosage: 0.005 MG IN 0.1 ML
     Route: 050
  2. METFORMIN [Concomitant]
     Active Substance: METFORMIN HYDROCHLORIDE
     Dosage: UNK
     Route: 065
  3. VANCOMYCIN HCL [Suspect]
     Active Substance: VANCOMYCIN HYDROCHLORIDE
     Indication: UROSEPSIS
     Dosage: UNK
     Route: 042
  4. PARACETAMOL [Concomitant]
     Active Substance: ACETAMINOPHEN
     Dosage: UNK
     Route: 065
  5. MEROPENEM. [Suspect]
     Active Substance: MEROPENEM
     Indication: UROSEPSIS
     Dosage: UNK
     Route: 042
  6. VANCOMYCIN HCL [Suspect]
     Active Substance: VANCOMYCIN HYDROCHLORIDE
     Indication: PARACENTESIS EYE
     Dosage: 1 MG IN 0.5ML, UNK
     Route: 050
  7. VANCOMYCIN HCL [Suspect]
     Active Substance: VANCOMYCIN HYDROCHLORIDE
     Indication: EYE OPERATION
     Dosage: 1 MG IN 0.5ML, UNK
     Route: 050
  8. TRAMADOL. [Concomitant]
     Active Substance: TRAMADOL
     Dosage: UNK
     Route: 065
  9. CEFTRIAXONE. [Concomitant]
     Active Substance: CEFTRIAXONE
     Indication: PARACENTESIS EYE
     Dosage: 2 G, 2X/DAY
     Route: 042
  10. DEXAMETHASONE. [Suspect]
     Active Substance: DEXAMETHASONE
     Indication: IRITIS
     Dosage: 0.1 %, 2X/DAY
  11. CYCLOPENTOLATE. [Concomitant]
     Active Substance: CYCLOPENTOLATE
     Indication: PARACENTESIS EYE
     Dosage: 1 %, 2X/DAY
  12. FLUCONAZOLE. [Concomitant]
     Active Substance: FLUCONAZOLE
     Indication: PARACENTESIS EYE
     Dosage: 400 MG, 1X/DAY
     Route: 048
  13. HYPROMELLOSE [Concomitant]
     Active Substance: HYPROMELLOSES
     Indication: IRITIS
     Dosage: 0.3 %, AS REQUIRED
  14. AMPHOTERICIN [Concomitant]
     Active Substance: AMPHOTERICIN B
     Indication: EYE OPERATION
     Dosage: 0.005 MG, UNK
     Route: 050
  15. CEFTAZIDIME. [Concomitant]
     Active Substance: CEFTAZIDIME
     Dosage: 1 MG
     Route: 050
  16. VANCOMYCIN HCL [Suspect]
     Active Substance: VANCOMYCIN HYDROCHLORIDE
     Dosage: 1 MG, UNK
     Route: 050
  17. ATROPINE. [Concomitant]
     Active Substance: ATROPINE
     Indication: PARACENTESIS EYE
     Dosage: 1 %, 2X/DAY
     Route: 050
  18. CEFTAZIDIME. [Concomitant]
     Active Substance: CEFTAZIDIME
     Indication: PARACENTESIS EYE
     Dosage: 1 MG IN 0.05 ML
     Route: 050
  19. CEFTAZIDIME. [Concomitant]
     Active Substance: CEFTAZIDIME
     Indication: EYE OPERATION
     Dosage: 1 MG IN 0.05 ML
     Route: 050
  20. CYCLOPENTOLATE. [Concomitant]
     Active Substance: CYCLOPENTOLATE
     Indication: IRITIS
     Dosage: 1 %, 2X/DAY
  21. PREDNISOLONE. [Concomitant]
     Active Substance: PREDNISOLONE
     Indication: PARACENTESIS EYE
     Dosage: UNK
  22. SALBUTAMOL [Concomitant]
     Active Substance: ALBUTEROL
     Dosage: UNK
     Route: 065

REACTIONS (2)
  - Endophthalmitis [Unknown]
  - Eye infection fungal [Unknown]
